FAERS Safety Report 18287941 (Version 18)
Quarter: 2023Q4

REPORT INFORMATION
  Report Type: Spontaneous
  Country: CA (occurrence: CA)
  Receive Date: 20200921
  Receipt Date: 20231118
  Transmission Date: 20240110
  Serious: Yes (Hospitalization, Other)
  Sender: FDA-Public Use
  Company Number: CA-CELLTRION INC.-2020CA023713

PATIENT

DRUGS (20)
  1. INFLECTRA [Suspect]
     Active Substance: INFLIXIMAB-DYYB
     Indication: Colitis ulcerative
     Dosage: 600 MG AT WEEK 0, 2,6, THEN EVERY 8 WEEKS
     Route: 042
     Dates: start: 20200606
  2. INFLECTRA [Suspect]
     Active Substance: INFLIXIMAB-DYYB
     Dosage: 600 MG AT WEEK 0, 2,6, THEN EVERY 8 WEEKS
     Route: 042
     Dates: start: 20200619
  3. INFLECTRA [Suspect]
     Active Substance: INFLIXIMAB-DYYB
     Dosage: 600 MG AT WEEK 0, 2,6, THEN EVERY 8 WEEKS
     Route: 042
     Dates: start: 20200717
  4. INFLECTRA [Suspect]
     Active Substance: INFLIXIMAB-DYYB
     Dosage: 600 MG AT WEEK 0, 2,6, THEN EVERY 8 WEEKS
     Route: 042
     Dates: start: 20200911
  5. INFLECTRA [Suspect]
     Active Substance: INFLIXIMAB-DYYB
     Dosage: 600 MG AT WEEK 0, 2,6, THEN EVERY 8 WEEKS
     Route: 042
     Dates: start: 20201106
  6. INFLECTRA [Suspect]
     Active Substance: INFLIXIMAB-DYYB
     Dosage: 600 MG AT WEEK 0, 2,6, THEN EVERY 8 WEEKS
     Route: 042
     Dates: start: 20210108
  7. INFLECTRA [Suspect]
     Active Substance: INFLIXIMAB-DYYB
     Dosage: 600 MG AT WEEK 0, 2,6, THEN EVERY 8 WEEKS
     Route: 042
     Dates: start: 20210305
  8. INFLECTRA [Suspect]
     Active Substance: INFLIXIMAB-DYYB
     Dosage: 600 MG AT WEEK 0, 2,6, THEN EVERY 8 WEEKS
     Route: 042
     Dates: start: 20210430
  9. INFLECTRA [Suspect]
     Active Substance: INFLIXIMAB-DYYB
     Dosage: 600 MG AT WEEK 0, 2,6, THEN EVERY 8 WEEKS
     Route: 042
     Dates: start: 20210625
  10. INFLECTRA [Suspect]
     Active Substance: INFLIXIMAB-DYYB
     Dosage: 600 MG AT WEEK 0, 2,6, THEN EVERY 8 WEEKS
     Route: 042
     Dates: start: 20210820
  11. INFLECTRA [Suspect]
     Active Substance: INFLIXIMAB-DYYB
     Dosage: 600 MG AT WEEK 0, 2,6, THEN EVERY 8 WEEKS
     Route: 042
     Dates: start: 20211015
  12. INFLECTRA [Suspect]
     Active Substance: INFLIXIMAB-DYYB
     Dosage: 600 MG AT WEEK 0, 2,6, THEN EVERY 8 WEEKS
     Route: 042
     Dates: start: 20211210, end: 20211210
  13. INFLECTRA [Suspect]
     Active Substance: INFLIXIMAB-DYYB
     Dosage: 600 MG AT WEEK 0, 2,6, THEN EVERY 8 WEEKS
     Route: 042
     Dates: start: 20220204
  14. INFLECTRA [Suspect]
     Active Substance: INFLIXIMAB-DYYB
     Dosage: 600 MG, AT WEEK 0, 2,6, THEN EVERY 8 WEEKS
     Route: 042
     Dates: start: 20220722
  15. INFLECTRA [Suspect]
     Active Substance: INFLIXIMAB-DYYB
     Dosage: 600 MG, WEEK 0, 2, 6, THEN EVERY 8 WEEKS
     Route: 042
     Dates: start: 20220923, end: 20220923
  16. INFLECTRA [Suspect]
     Active Substance: INFLIXIMAB-DYYB
     Dosage: 600 MG, WEEK 0, 2, 6, THEN EVERY 8 WEEKS
     Route: 042
     Dates: start: 20230310, end: 20230310
  17. HYDROMORPHONE [Concomitant]
     Active Substance: HYDROMORPHONE
     Dosage: 1 MG EVERY 7-8 HOURS
     Route: 048
  18. MIRTAZAPINE [Concomitant]
     Active Substance: MIRTAZAPINE
     Dosage: 15 MG
     Route: 048
  19. PREDNISONE [Concomitant]
     Active Substance: PREDNISONE
     Dosage: 40 MG TAPER
     Route: 048
  20. TYLENOL [Concomitant]
     Active Substance: ACETAMINOPHEN
     Dosage: UNK
     Route: 048

REACTIONS (26)
  - Seizure [Unknown]
  - Haematochezia [Unknown]
  - Therapeutic response shortened [Not Recovered/Not Resolved]
  - Condition aggravated [Unknown]
  - Heart rate increased [Unknown]
  - Swelling face [Unknown]
  - Blood pressure diastolic increased [Unknown]
  - Stress [Not Recovered/Not Resolved]
  - Heart rate decreased [Unknown]
  - Electroencephalogram abnormal [Unknown]
  - Body temperature decreased [Unknown]
  - Fatigue [Unknown]
  - Abdominal discomfort [Recovering/Resolving]
  - Limb injury [Unknown]
  - Pain [Recovering/Resolving]
  - Paraesthesia [Recovering/Resolving]
  - Skin discolouration [Recovering/Resolving]
  - Heart rate irregular [Unknown]
  - Ear infection [Not Recovered/Not Resolved]
  - Headache [Unknown]
  - Nausea [Unknown]
  - Malaise [Not Recovered/Not Resolved]
  - Pyrexia [Not Recovered/Not Resolved]
  - Off label use [Unknown]
  - Off label use [Unknown]
  - Intentional product use issue [Unknown]

NARRATIVE: CASE EVENT DATE: 20200619
